FAERS Safety Report 13288660 (Version 4)
Quarter: 2017Q2

REPORT INFORMATION
  Report Type: Spontaneous
  Country: ET (occurrence: ET)
  Receive Date: 20170302
  Receipt Date: 20170524
  Transmission Date: 20170830
  Serious: Yes (Other)
  Sender: FDA-Public Use
  Company Number: ET-ABBVIE-17P-052-1892101-00

PATIENT
  Sex: Male

DRUGS (2)
  1. EPILIM [Suspect]
     Active Substance: VALPROATE SODIUM
     Indication: SEIZURE
     Dosage: EXTENDED RELEASE
     Route: 048
  2. EPILIM [Suspect]
     Active Substance: VALPROATE SODIUM
     Dosage: EXTENDED RELEASE
     Route: 048

REACTIONS (4)
  - Drug level below therapeutic [Unknown]
  - Seizure [Recovered/Resolved]
  - Anticonvulsant drug level decreased [Unknown]
  - Medication residue present [Unknown]
